FAERS Safety Report 8592326-5 (Version None)
Quarter: 2012Q3

REPORT INFORMATION
  Report Type: 
  Country: None (occurrence: None)
  Receive Date: 20120814
  Receipt Date: 20120806
  Transmission Date: 20120928
  Serious: Yes (Hospitalization)
  Sender: FDA-Public Use
  Company Number: JP-JNJFOC-20120611691

PATIENT
  Sex: Male

DRUGS (10)
  1. USTEKINUMAB [Suspect]
     Route: 058
     Dates: start: 20120228, end: 20120228
  2. ALL OTHER THERAPEUTIC PRODUCTS [Concomitant]
     Route: 048
  3. TIGASON [Concomitant]
     Route: 048
     Dates: start: 20120228
  4. ALL OTHER THERAPEUTIC PRODUCTS [Concomitant]
     Route: 042
  5. USTEKINUMAB [Suspect]
     Route: 058
     Dates: start: 20111206, end: 20111206
  6. CYCLOSPORINE [Concomitant]
     Indication: PSORIASIS
     Route: 048
     Dates: start: 20111228, end: 20120124
  7. USTEKINUMAB [Suspect]
     Indication: PSORIASIS
     Route: 058
     Dates: start: 20111108, end: 20111108
  8. CYCLOSPORINE [Concomitant]
     Route: 048
     Dates: start: 20111109, end: 20111205
  9. METHOTREXATE [Suspect]
     Indication: PRODUCT USED FOR UNKNOWN INDICATION
  10. CYCLOSPORINE [Concomitant]
     Route: 048
     Dates: start: 20111206, end: 20120227

REACTIONS (2)
  - INTERSTITIAL LUNG DISEASE [None]
  - DRUG INEFFECTIVE [None]
